FAERS Safety Report 18549574 (Version 2)
Quarter: 2023Q1

REPORT INFORMATION
  Report Type: Report from Study
  Country: US (occurrence: US)
  Receive Date: 20201126
  Receipt Date: 20230111
  Transmission Date: 20230417
  Serious: Yes (Disabling, Other)
  Sender: FDA-Public Use
  Company Number: US-TAKEDA-2019TUS026825

PATIENT
  Sex: Female

DRUGS (1)
  1. VEDOLIZUMAB [Suspect]
     Active Substance: VEDOLIZUMAB
     Indication: Colitis ulcerative
     Dosage: 300 MILLIGRAM, Q6WEEKS
     Route: 042

REACTIONS (6)
  - Lyme disease [Unknown]
  - Disability [Unknown]
  - Feeling abnormal [Unknown]
  - Colitis [Unknown]
  - Nervousness [Unknown]
  - Off label use [Unknown]
